FAERS Safety Report 8387699 (Version 5)
Quarter: 2013Q4

REPORT INFORMATION
  Report Type: Spontaneous
  Country: US (occurrence: US)
  Receive Date: 20120203
  Receipt Date: 20131003
  Transmission Date: 20140711
  Serious: Yes (Other)
  Sender: FDA-Public Use
  Company Number: US-PFIZER INC-2012026238

PATIENT
  Age: 45 Year
  Sex: Female
  Weight: 58.96 kg

DRUGS (4)
  1. LYRICA [Suspect]
     Indication: FIBROMYALGIA
     Dosage: 300 MG, 2X/DAY
     Route: 048
     Dates: start: 201101, end: 20110130
  2. LYRICA [Suspect]
     Dosage: 300 MG, 2X/DAY
  3. CYMBALTA [Concomitant]
     Indication: DEPRESSION
     Dosage: UNK
  4. XANAX [Concomitant]
     Indication: DEPRESSION
     Dosage: UNK

REACTIONS (8)
  - Brain injury [Unknown]
  - Accident [Unknown]
  - Fall [Unknown]
  - Pain [Unknown]
  - Nasopharyngitis [Recovered/Resolved]
  - Cough [Recovered/Resolved]
  - Nasal congestion [Recovered/Resolved]
  - Influenza [Recovered/Resolved]
